FAERS Safety Report 4737185-3 (Version None)
Quarter: 2005Q3

REPORT INFORMATION
  Report Type: 
  Country: None (occurrence: None)
  Receive Date: 20050728
  Receipt Date: 20050512
  Transmission Date: 20060218
  Serious: No
  Sender: FDA-Public Use
  Company Number: 200514168US

PATIENT
  Age: 73 Year
  Sex: Female
  Weight: 56.8 kg

DRUGS (4)
  1. KETEK [Suspect]
     Indication: BRONCHITIS
     Dosage: 800 MG/DAY
     Dates: start: 20050511, end: 20050512
  2. SIMVASTATIN [Concomitant]
  3. ACTONEL [Concomitant]
  4. CLARITHROMYCIN (BIAXIN) [Concomitant]

REACTIONS (3)
  - DIZZINESS [None]
  - NAUSEA [None]
  - VISION BLURRED [None]
